FAERS Safety Report 21455586 (Version 1)
Quarter: 2022Q4

REPORT INFORMATION
  Report Type: Spontaneous
  Country: GB (occurrence: None)
  Receive Date: 20221014
  Receipt Date: 20221014
  Transmission Date: 20230113
  Serious: Yes (Death, Hospitalization, Other)
  Sender: FDA-Public Use
  Company Number: GB-VistaPharm, Inc.-VER202210-000827

PATIENT
  Age: 83 Year
  Sex: Female

DRUGS (1)
  1. ACETAMINOPHEN\HYDROCODONE [Suspect]
     Active Substance: ACETAMINOPHEN\HYDROCODONE
     Indication: Product used for unknown indication
     Dosage: 1 G
     Route: 048

REACTIONS (4)
  - Multiple organ dysfunction syndrome [Unknown]
  - Sepsis [Unknown]
  - Drug-induced liver injury [Unknown]
  - Prescribed overdose [Fatal]
